FAERS Safety Report 18183526 (Version 1)
Quarter: 2020Q3

REPORT INFORMATION
  Report Type: Spontaneous
  Country: US (occurrence: DE)
  Receive Date: 20200822
  Receipt Date: 20200822
  Transmission Date: 20201103
  Serious: Yes (Death, Life-Threatening, Hospitalization, Other)
  Sender: FDA-Public Use
  Company Number: NVSC2018DE009869

PATIENT
  Age: 79 Year
  Sex: Female
  Weight: 71 kg

DRUGS (40)
  1. DIOVAN [Suspect]
     Active Substance: VALSARTAN
     Indication: PRODUCT USED FOR UNKNOWN INDICATION
     Dosage: UNK
     Route: 065
     Dates: start: 2013, end: 2013
  2. ADVITAN [Concomitant]
     Indication: PRODUCT USED FOR UNKNOWN INDICATION
     Dosage: UNK
     Route: 065
     Dates: start: 2018
  3. DIGIMERCK MINOR [Concomitant]
     Active Substance: DIGITOXIN
     Indication: PRODUCT USED FOR UNKNOWN INDICATION
     Dosage: UNK, 0.07
     Route: 065
     Dates: start: 201901
  4. HCT HEXAL [Concomitant]
     Active Substance: HYDROCHLOROTHIAZIDE
     Indication: PRODUCT USED FOR UNKNOWN INDICATION
     Dosage: UNK, QD, 1/2 TABLET OF 25 MG, DAILY 8 AM
     Route: 048
     Dates: start: 20180524, end: 20180524
  5. MOMETASON GLENMARK [Concomitant]
     Indication: PRODUCT USED FOR UNKNOWN INDICATION
     Dosage: 1MG/G
     Route: 065
  6. HALOPERIDOL NEURAXPHARM [Concomitant]
     Indication: PRODUCT USED FOR UNKNOWN INDICATION
     Dosage: 30 ML, SOLUTION
     Route: 065
     Dates: start: 201902
  7. MACROGOL ABZ BALANCE [Concomitant]
     Indication: PRODUCT USED FOR UNKNOWN INDICATION
     Dosage: UNK, POWDER
     Route: 065
     Dates: start: 201902
  8. MIDAZOLAM. [Concomitant]
     Active Substance: MIDAZOLAM
     Indication: PRODUCT USED FOR UNKNOWN INDICATION
     Dosage: UNK, 5MG/1ML
     Route: 065
     Dates: start: 201903
  9. VALSARTAN HEXAL 320 MG FILMTABLETTEN [Suspect]
     Active Substance: VALSARTAN
     Indication: PRODUCT USED FOR UNKNOWN INDICATION
     Dosage: 320 MG, BID, ? A TABLET, (8 A.M., 6 P.M.)
     Route: 048
     Dates: start: 20180523
  10. VALSARTAN ? 1 A PHARMA 160 MG FILMTABLETTEN [Suspect]
     Active Substance: VALSARTAN
     Indication: PRODUCT USED FOR UNKNOWN INDICATION
     Dosage: 160 MG
     Route: 065
     Dates: start: 201312, end: 2017
  11. PREDNISOLONE. [Suspect]
     Active Substance: PREDNISOLONE
     Indication: PRODUCT USED FOR UNKNOWN INDICATION
     Route: 065
  12. FERRO SANOL [Concomitant]
     Active Substance: FERROUS GLYCINE SULFATE
     Indication: PRODUCT USED FOR UNKNOWN INDICATION
     Dosage: 1 DF, QD (MORNING)
     Route: 065
  13. HYDROMORPHONE [Concomitant]
     Active Substance: HYDROMORPHONE
     Indication: PRODUCT USED FOR UNKNOWN INDICATION
     Dosage: 2 MG
     Route: 065
     Dates: start: 201902
  14. VALSARTAN DURA [Concomitant]
     Active Substance: VALSARTAN
     Indication: PRODUCT USED FOR UNKNOWN INDICATION
     Dosage: 160 MG
     Route: 065
     Dates: start: 201702
  15. VALSARTAN. [Suspect]
     Active Substance: VALSARTAN
     Dosage: 160 MG, ONCE IN THE MORNING, ONCE IN THE EVENING
     Route: 065
     Dates: start: 201005
  16. VALSARTAN HEXAL 160 MG FILMTABLETTEN [Suspect]
     Active Substance: VALSARTAN
     Indication: PRODUCT USED FOR UNKNOWN INDICATION
     Dosage: UNK
     Route: 065
     Dates: start: 2014
  17. BISOPROLOL PLUS 10/25 ? 1 A PHARMA [Suspect]
     Active Substance: BISOPROLOL FUMARATE\HYDROCHLOROTHIAZIDE
     Dosage: UNK
     Route: 065
     Dates: start: 2014, end: 2018
  18. FUROSEMID [Concomitant]
     Active Substance: FUROSEMIDE
     Indication: PRODUCT USED FOR UNKNOWN INDICATION
     Dosage: 40 MG, BID
     Route: 065
     Dates: start: 201903
  19. PARACETAMOL 1 A PHARMA [Concomitant]
     Indication: PRODUCT USED FOR UNKNOWN INDICATION
     Dosage: 1000 MG, SUSPENSION
     Route: 065
     Dates: start: 201903
  20. FENTANYL CT [Concomitant]
     Indication: PRODUCT USED FOR UNKNOWN INDICATION
     Dosage: UNK, 12 UG/H
     Route: 065
     Dates: start: 201903
  21. DIOVAN [Suspect]
     Active Substance: VALSARTAN
     Indication: PRODUCT USED FOR UNKNOWN INDICATION
     Dosage: UNK
     Route: 065
     Dates: start: 2011, end: 2013
  22. AMLODIPIN HEXAL 5 MG TABLETTEN [AMLODIPINE MESILATE] [Suspect]
     Active Substance: AMLODIPINE MESYLATE
     Indication: PRODUCT USED FOR UNKNOWN INDICATION
     Dosage: UNK UNK, BID
     Route: 065
     Dates: start: 200803
  23. AMLODIPIN HEXAL 5 MG TABLETTEN [AMLODIPINE MESILATE] [Suspect]
     Active Substance: AMLODIPINE MESYLATE
     Dosage: 5 MG
     Route: 065
     Dates: start: 2013, end: 2018
  24. L?THYROX HEXAL125 MIKROGRAMM [Suspect]
     Active Substance: LEVOTHYROXINE SODIUM
     Indication: PRODUCT USED FOR UNKNOWN INDICATION
     Dosage: UNK
     Route: 065
     Dates: start: 2014, end: 2016
  25. L?THYROXIN?HENNING [Concomitant]
     Dosage: UNK, 125
     Route: 065
     Dates: start: 2016
  26. PANTOPRAZOL AL [Concomitant]
     Active Substance: PANTOPRAZOLE SODIUM
     Indication: PRODUCT USED FOR UNKNOWN INDICATION
     Dosage: UNK, QD, 1X 40 (MORNING)
     Route: 065
  27. EUTHYROX [Concomitant]
     Active Substance: LEVOTHYROXINE SODIUM
     Indication: PRODUCT USED FOR UNKNOWN INDICATION
     Dosage: UNK, QD, 1X 125 (MORNING)
     Route: 065
  28. BISOPROLOL [Concomitant]
     Active Substance: BISOPROLOL
     Indication: PRODUCT USED FOR UNKNOWN INDICATION
     Dosage: UNK, QD, 1/2*10/25 (MORNING)
     Route: 065
     Dates: start: 201302
  29. PANTOPRAZOLE [Concomitant]
     Active Substance: PANTOPRAZOLE
     Indication: PRODUCT USED FOR UNKNOWN INDICATION
     Dosage: 40 MG
     Route: 065
     Dates: start: 201901
  30. VALSARTAN HEXAL 320 MG FILMTABLETTEN [Suspect]
     Active Substance: VALSARTAN
     Dosage: UNK, ONGOING AT DISCHARGE FROM REHABILITATION
     Route: 065
     Dates: start: 20180612
  31. ECURAL [Concomitant]
     Active Substance: MOMETASONE
     Indication: PRODUCT USED FOR UNKNOWN INDICATION
     Dosage: FAT CREAM
     Route: 065
  32. BISOPROLOL [Concomitant]
     Active Substance: BISOPROLOL
     Dosage: UNK UNK, QD, 1/2*10 (EVENING)
     Route: 065
  33. VALSARTAN. [Suspect]
     Active Substance: VALSARTAN
     Indication: PRODUCT USED FOR UNKNOWN INDICATION
     Dosage: 160 MG, BID
     Route: 065
     Dates: start: 2005
  34. VALSARTAN. [Suspect]
     Active Substance: VALSARTAN
     Indication: PRODUCT USED FOR UNKNOWN INDICATION
     Dosage: UNK
     Route: 065
     Dates: start: 2013
  35. VALSARTAN. [Suspect]
     Active Substance: VALSARTAN
     Indication: PRODUCT USED FOR UNKNOWN INDICATION
     Dosage: UNK
     Route: 065
     Dates: start: 2017, end: 2018
  36. BISOPROLOL PLUS 10/25 ? 1 A PHARMA [Suspect]
     Active Substance: BISOPROLOL FUMARATE\HYDROCHLOROTHIAZIDE
     Indication: PRODUCT USED FOR UNKNOWN INDICATION
     Dosage: UNK
     Route: 065
     Dates: start: 2014, end: 2018
  37. L?THYROXIN?HENNING [Concomitant]
     Indication: PRODUCT USED FOR UNKNOWN INDICATION
     Dosage: UNK, QD, 1 X 125 (MORNING)
     Route: 065
     Dates: start: 199003, end: 2018
  38. IBUPROFEN. [Concomitant]
     Active Substance: IBUPROFEN
     Indication: PRODUCT USED FOR UNKNOWN INDICATION
     Dosage: 1*400 (MORNING AND EVENING)
     Route: 065
  39. BISOPROLOL [Concomitant]
     Active Substance: BISOPROLOL
     Dosage: UNK
     Route: 065
     Dates: start: 201811
  40. BISOPROLOL RATIOPHARM [Concomitant]
     Active Substance: BISOPROLOL
     Indication: PRODUCT USED FOR UNKNOWN INDICATION
     Dosage: 1 DF, (12 JUN 2018) ONGOING AT DISCHARGE FROM REHABILITATION
     Route: 048
     Dates: start: 20180524

REACTIONS (54)
  - Osteoarthritis [Unknown]
  - Aphasia [Recovering/Resolving]
  - Varicose vein [Unknown]
  - Tinnitus [Unknown]
  - Insomnia [Unknown]
  - Large intestine polyp [Unknown]
  - Melanocytic naevus [Unknown]
  - Gait disturbance [Unknown]
  - Metastases to lung [Not Recovered/Not Resolved]
  - Asthenia [Unknown]
  - Personality change [Recovering/Resolving]
  - Brain oedema [Unknown]
  - Memory impairment [Recovering/Resolving]
  - Dyspnoea exertional [Unknown]
  - Colitis [Unknown]
  - Cataract [Unknown]
  - Blood pressure inadequately controlled [Unknown]
  - Inflammatory marker increased [Unknown]
  - Restlessness [Unknown]
  - Oedema peripheral [Recovering/Resolving]
  - Nocturia [Unknown]
  - General physical health deterioration [Recovering/Resolving]
  - Metastases to central nervous system [Unknown]
  - Coordination abnormal [Recovering/Resolving]
  - Cardiac failure [Unknown]
  - Abdominal pain [Unknown]
  - Functional gastrointestinal disorder [Unknown]
  - Weight increased [Recovering/Resolving]
  - Haemorrhoids [Unknown]
  - Suicidal ideation [Fatal]
  - Dyspnoea [Unknown]
  - Fatigue [Unknown]
  - Vomiting [Unknown]
  - Nephrogenic anaemia [Unknown]
  - Meniscus injury [Unknown]
  - Adenomatous polyposis coli [Recovered/Resolved]
  - Diarrhoea [Unknown]
  - Hypothyroidism [Unknown]
  - Urinary retention [Unknown]
  - Visual impairment [Unknown]
  - Blood glucose increased [Unknown]
  - Joint swelling [Recovering/Resolving]
  - Ventricular extrasystoles [Unknown]
  - Death [Fatal]
  - Pleural effusion [Recovered/Resolved]
  - Arthralgia [Recovering/Resolving]
  - Gastroenteritis [Unknown]
  - Bradycardia [Unknown]
  - Drug intolerance [Unknown]
  - Clear cell renal cell carcinoma [Not Recovered/Not Resolved]
  - Renal neoplasm [Recovered/Resolved]
  - Chronic kidney disease [Unknown]
  - Cognitive disorder [Recovering/Resolving]
  - Confusional state [Recovering/Resolving]

NARRATIVE: CASE EVENT DATE: 200909
